FAERS Safety Report 11977204 (Version 1)
Quarter: 2016Q1

REPORT INFORMATION
  Report Type: Spontaneous
  Country: CN (occurrence: CN)
  Receive Date: 20160129
  Receipt Date: 20160129
  Transmission Date: 20160526
  Serious: Yes (Death, Other)
  Sender: FDA-Public Use
  Company Number: PHHY2016CN008470

PATIENT
  Age: 39 Year
  Sex: Female

DRUGS (9)
  1. PYRAMIDE [Suspect]
     Active Substance: PYRAZINAMIDE
     Indication: LATENT TUBERCULOSIS
     Dosage: 1200 MG, QD
     Route: 065
  2. SIROLIMUS. [Suspect]
     Active Substance: SIROLIMUS
     Indication: IMMUNOSUPPRESSANT DRUG THERAPY
     Route: 065
  3. STREPTOMYCIN [Suspect]
     Active Substance: STREPTOMYCIN\STREPTOMYCIN SULFATE
     Indication: LATENT TUBERCULOSIS
     Route: 065
  4. TACROLIMUS. [Suspect]
     Active Substance: TACROLIMUS
     Indication: IMMUNOSUPPRESSANT DRUG THERAPY
     Dosage: LOW DOSE
     Route: 065
  5. METHYLPREDNISOLONE. [Suspect]
     Active Substance: METHYLPREDNISOLONE
     Indication: IMMUNOADSORPTION THERAPY
     Route: 065
  6. ISONIAZID. [Suspect]
     Active Substance: ISONIAZID
     Indication: LATENT TUBERCULOSIS
     Dosage: 200 MG, QD
     Route: 065
  7. RIFAMPICIN [Suspect]
     Active Substance: RIFAMPIN
     Indication: LATENT TUBERCULOSIS
     Dosage: 480 MG, QD
     Route: 065
  8. MOXIFLOXACIN. [Suspect]
     Active Substance: MOXIFLOXACIN
     Indication: LATENT TUBERCULOSIS
     Route: 065
  9. ETHAMBUTOL [Suspect]
     Active Substance: ETHAMBUTOL HYDROCHLORIDE
     Indication: LATENT TUBERCULOSIS
     Route: 065

REACTIONS (6)
  - Cholangitis [Fatal]
  - Lung infection [Fatal]
  - Liver transplant rejection [Unknown]
  - Acute hepatic failure [Unknown]
  - Encephalopathy [Unknown]
  - Drug resistance [Unknown]
